FAERS Safety Report 8837392 (Version 4)
Quarter: 2012Q4

REPORT INFORMATION
  Report Type: 
  Country: IN (occurrence: IN)
  Receive Date: 20121012
  Receipt Date: 20121107
  Transmission Date: 20130627
  Serious: Yes (Death)
  Sender: FDA-Public Use
  Company Number: IN-BAYER-2012-106085

PATIENT
  Age: 64 Year
  Sex: Female

DRUGS (1)
  1. ULTRAVIST [Suspect]
     Indication: COMPUTERISED TOMOGRAM ABDOMEN
     Dosage: 100 ml, UNK
     Dates: start: 20120926

REACTIONS (4)
  - Anaphylactic reaction [Fatal]
  - Hypotension [Fatal]
  - Dyspnoea [Fatal]
  - Haematemesis [Fatal]
